FAERS Safety Report 7305055 (Version 4)
Quarter: 2014Q2

REPORT INFORMATION
  Report Type: Spontaneous
  Country: US (occurrence: US)
  Receive Date: 20100304
  Receipt Date: 20140401
  Transmission Date: 20141212
  Serious: Yes (Other)
  Sender: FDA-Public Use
  Company Number: US-ALEXION-A201000219

PATIENT
  Sex: 0

DRUGS (6)
  1. SOLIRIS 300MG [Suspect]
     Indication: PAROXYSMAL NOCTURNAL HAEMOGLOBINURIA
     Dosage: 600 MG, QW
     Route: 042
     Dates: start: 20071004, end: 20071025
  2. SOLIRIS 300MG [Suspect]
     Dosage: 900 MG, UNK
     Route: 042
     Dates: start: 20071101, end: 20081106
  3. VIDAZA [Concomitant]
     Indication: MYELODYSPLASTIC SYNDROME
     Dosage: UNK
     Dates: start: 200909, end: 200912
  4. RITUXAN [Concomitant]
     Dosage: UNK
     Route: 042
     Dates: start: 200912
  5. ENSURE                             /07421001/ [Concomitant]
     Indication: NAUSEA
     Dosage: 3 QD
     Route: 048
  6. ENSURE                             /07421001/ [Concomitant]
     Indication: DIARRHOEA

REACTIONS (5)
  - Lymphoma [Not Recovered/Not Resolved]
  - Fatigue [Unknown]
  - Nausea [Unknown]
  - Diarrhoea [Unknown]
  - Weight decreased [Unknown]
